FAERS Safety Report 9253375 (Version 6)
Quarter: 2014Q1

REPORT INFORMATION
  Report Type: Spontaneous
  Country: AU (occurrence: AU)
  Receive Date: 20130425
  Receipt Date: 20140306
  Transmission Date: 20141002
  Serious: Yes (Hospitalization, Other)
  Sender: FDA-Public Use
  Company Number: AU-AMGEN-AUSSP2013027646

PATIENT
  Age: 84 Year
  Sex: Female

DRUGS (1)
  1. PROLIA [Suspect]
     Indication: OSTEOPOROSIS POSTMENOPAUSAL
     Dosage: UNK
     Route: 065
     Dates: start: 20130220

REACTIONS (28)
  - Rash generalised [Not Recovered/Not Resolved]
  - Weight decreased [Not Recovered/Not Resolved]
  - Basal cell carcinoma [Unknown]
  - Pain in jaw [Not Recovered/Not Resolved]
  - Malaise [Not Recovered/Not Resolved]
  - Skin swelling [Unknown]
  - Pyrexia [Unknown]
  - Dry skin [Not Recovered/Not Resolved]
  - Hypoaesthesia [Not Recovered/Not Resolved]
  - Spinal pain [Unknown]
  - Gingival pain [Unknown]
  - Facial pain [Unknown]
  - Nausea [Unknown]
  - Pain [Unknown]
  - Diverticulitis [Unknown]
  - Vitamin D decreased [Unknown]
  - Alopecia [Unknown]
  - Arthritis [Unknown]
  - Abdominal pain upper [Unknown]
  - Myalgia [Unknown]
  - Vertigo [Unknown]
  - Back pain [Unknown]
  - Bone pain [Not Recovered/Not Resolved]
  - Pruritus [Not Recovered/Not Resolved]
  - Arthralgia [Unknown]
  - Pain in extremity [Unknown]
  - Skin infection [Unknown]
  - Erythema [Unknown]
